FAERS Safety Report 20956218 (Version 20)
Quarter: 2022Q4

REPORT INFORMATION
  Report Type: Report from Study
  Country: US (occurrence: None)
  Receive Date: 20220614
  Receipt Date: 20221018
  Transmission Date: 20230112
  Serious: Yes (Hospitalization)
  Sender: FDA-Public Use
  Company Number: US-Eisai Medical Research-EC-2022-116833

PATIENT
  Age: 80 Year
  Sex: Female
  Weight: 84.5 kg

DRUGS (20)
  1. LENVATINIB [Suspect]
     Active Substance: LENVATINIB
     Indication: Clear cell renal cell carcinoma
     Route: 048
     Dates: start: 20220427, end: 20220508
  2. LENVATINIB [Suspect]
     Active Substance: LENVATINIB
     Route: 048
     Dates: start: 20220518, end: 20220518
  3. QUAVONLIMAB [Suspect]
     Active Substance: QUAVONLIMAB
     Indication: Clear cell renal cell carcinoma
     Dosage: QUAVONLIMAB (MK-1308) 25 MG (+) PEMBROLIZUMAB (MK-3475) 400 MG) (MK-1308A) 425 MG
     Route: 041
     Dates: start: 20220427, end: 20220427
  4. ACETAMINOPHEN [Concomitant]
     Active Substance: ACETAMINOPHEN
     Dates: start: 20120101
  5. FLAXSEED [Concomitant]
     Active Substance: FLAX SEED
     Dates: start: 201201
  6. FAMOTIDINE [Concomitant]
     Active Substance: FAMOTIDINE
     Dates: start: 201201
  7. MIRALAX [Concomitant]
     Active Substance: POLYETHYLENE GLYCOL 3350
     Dates: start: 201201, end: 202206
  8. AMLODIPINE [Concomitant]
     Active Substance: AMLODIPINE BESYLATE
     Dates: start: 201201
  9. MECLIZINE [Concomitant]
     Active Substance: MECLIZINE HYDROCHLORIDE
     Dates: start: 201201
  10. METOPROLOL SUCCINATE [Concomitant]
     Active Substance: METOPROLOL SUCCINATE
     Dates: start: 201201
  11. FOLIC ACID [Concomitant]
     Active Substance: FOLIC ACID
     Dates: start: 201201
  12. EZETIMIBE [Concomitant]
     Active Substance: EZETIMIBE
     Dates: start: 201201
  13. DORZOLAMIDE HYDROCHLORIDE [Concomitant]
     Active Substance: DORZOLAMIDE HYDROCHLORIDE
     Route: 031
     Dates: start: 201201
  14. LATANOPROST [Concomitant]
     Active Substance: LATANOPROST
     Dates: start: 201201
  15. ASPIRIN [Concomitant]
     Active Substance: ASPIRIN
     Dates: start: 201201
  16. .ALPHA.-TOCOPHEROL [Concomitant]
     Active Substance: .ALPHA.-TOCOPHEROL
     Dates: start: 201201
  17. VITAMINE D NOS [Concomitant]
     Dates: start: 201201
  18. FLUTICASONE [Concomitant]
     Active Substance: FLUTICASONE
     Dates: start: 201201
  19. SPIRONOLACTONE [Concomitant]
     Active Substance: SPIRONOLACTONE
     Dates: start: 20211115, end: 20220713
  20. PEMBROLIZUMAB [Suspect]
     Active Substance: PEMBROLIZUMAB
     Dates: start: 20220427

REACTIONS (2)
  - Diabetes mellitus [Not Recovered/Not Resolved]
  - Fatigue [Not Recovered/Not Resolved]

NARRATIVE: CASE EVENT DATE: 20220504
